FAERS Safety Report 22541170 (Version 1)
Quarter: 2023Q2

REPORT INFORMATION
  Report Type: Spontaneous
  Country: GR (occurrence: GR)
  Receive Date: 20230609
  Receipt Date: 20230609
  Transmission Date: 20230722
  Serious: Yes (Hospitalization)
  Sender: FDA-Public Use
  Company Number: GR-MYLANLABS-2023M1060691

PATIENT
  Age: 50 Year
  Sex: Female

DRUGS (12)
  1. VANCOMYCIN [Suspect]
     Active Substance: VANCOMYCIN
     Indication: Ecthyma
     Dosage: UNK
     Route: 065
  2. VANCOMYCIN [Suspect]
     Active Substance: VANCOMYCIN
     Indication: Acute myeloid leukaemia
  3. CYTARABINE [Suspect]
     Active Substance: CYTARABINE
     Indication: Ecthyma
     Dosage: 100 MILLIGRAM/SQ. METER, CYTARABINE 100 MG/M2 FOR 7 DAYS
     Route: 065
  4. CYTARABINE [Suspect]
     Active Substance: CYTARABINE
     Indication: Acute myeloid leukaemia
  5. IDARUBICIN [Suspect]
     Active Substance: IDARUBICIN
     Indication: Ecthyma
     Dosage: 12 MILLIGRAM/SQ. METER, IDARUBICIN 12 MG/M2 FOR 3 DAYS
     Route: 065
  6. IDARUBICIN [Suspect]
     Active Substance: IDARUBICIN
     Indication: Acute myeloid leukaemia
  7. MEROPENEM [Suspect]
     Active Substance: MEROPENEM
     Indication: Ecthyma
     Dosage: UNK
     Route: 065
  8. MEROPENEM [Suspect]
     Active Substance: MEROPENEM
     Indication: Acute myeloid leukaemia
  9. LINEZOLID [Suspect]
     Active Substance: LINEZOLID
     Indication: Ecthyma
     Dosage: UNK
     Route: 065
  10. LINEZOLID [Suspect]
     Active Substance: LINEZOLID
     Indication: Acute myeloid leukaemia
  11. ISAVUCONAZOLE [Suspect]
     Active Substance: ISAVUCONAZOLE
     Indication: Ecthyma
     Dosage: UNK
     Route: 065
  12. ISAVUCONAZOLE [Suspect]
     Active Substance: ISAVUCONAZOLE
     Indication: Acute myeloid leukaemia

REACTIONS (1)
  - Drug ineffective [Unknown]
